FAERS Safety Report 11907090 (Version 3)
Quarter: 2016Q1

REPORT INFORMATION
  Report Type: Report from Study
  Country: US (occurrence: US)
  Receive Date: 20160111
  Receipt Date: 20160308
  Transmission Date: 20160526
  Serious: Yes (Death, Hospitalization)
  Sender: FDA-Public Use
  Company Number: US-JNJFOC-20160102637

PATIENT
  Age: 85 Year
  Sex: Male

DRUGS (8)
  1. TOPROL XL [Concomitant]
     Active Substance: METOPROLOL SUCCINATE
  2. IMBRUVICA [Suspect]
     Active Substance: IBRUTINIB
     Indication: CHRONIC LYMPHOCYTIC LEUKAEMIA
     Route: 048
     Dates: start: 20150613, end: 2015
  3. ALLOPURINOL. [Concomitant]
     Active Substance: ALLOPURINOL
  4. GLIPIZIDE. [Concomitant]
     Active Substance: GLIPIZIDE
  5. HYDRODIURIL [Concomitant]
     Active Substance: HYDROCHLOROTHIAZIDE
  6. CELEBREX [Concomitant]
     Active Substance: CELECOXIB
  7. KEPPRA [Concomitant]
     Active Substance: LEVETIRACETAM
  8. DEPAKOTE [Concomitant]
     Active Substance: DIVALPROEX SODIUM

REACTIONS (4)
  - Off label use [Unknown]
  - Incorrect dose administered [Not Recovered/Not Resolved]
  - Cerebrovascular accident [Unknown]
  - Death [Fatal]

NARRATIVE: CASE EVENT DATE: 20150613
